FAERS Safety Report 15058484 (Version 5)
Quarter: 2018Q3

REPORT INFORMATION
  Report Type: Spontaneous
  Country: BE (occurrence: NL)
  Receive Date: 20180625
  Receipt Date: 20180802
  Transmission Date: 20181010
  Serious: Yes (Hospitalization)
  Sender: FDA-Public Use
  Company Number: PHHY2018NL027410

PATIENT
  Age: 45 Year
  Sex: Male
  Weight: 88 kg

DRUGS (11)
  1. BETAMETHASONE. [Concomitant]
     Active Substance: BETAMETHASONE
     Dosage: 400 G,UNK
     Route: 061
     Dates: start: 20180326
  2. DUPILUMAB [Suspect]
     Active Substance: DUPILUMAB
     Dosage: 1 DF,TOTAL
     Route: 058
     Dates: start: 20180316
  3. BETAMETHASONE. [Concomitant]
     Active Substance: BETAMETHASONE
     Indication: PROPHYLAXIS
     Dosage: 400 G,UNK
     Route: 061
     Dates: start: 20150428
  4. TEMAZEPAM. [Concomitant]
     Active Substance: TEMAZEPAM
     Dosage: 20 MG, UNK
     Route: 048
     Dates: start: 20180320
  5. CICLOSPORIN [Suspect]
     Active Substance: CYCLOSPORINE
     Indication: PRODUCT USED FOR UNKNOWN INDICATION
     Dosage: UNK
     Route: 065
  6. FLUTICASONE. [Concomitant]
     Active Substance: FLUTICASONE
     Dosage: TOTLA DOSE PRESCRIBED: 100 G NO. OF TUBES PER WEEK 7 AND NO. OF TUBES PER DAY: 1 GRAM/TUBE 0.05 MG/G
     Route: 061
     Dates: start: 20180316
  7. NEORAL [Concomitant]
     Active Substance: CYCLOSPORINE
     Indication: PROPHYLAXIS
     Dosage: 125 MG, Q12H (125 MG,BID)
     Route: 048
     Dates: start: 20160126, end: 20180316
  8. FLUTICASONE. [Concomitant]
     Active Substance: FLUTICASONE
     Indication: PROPHYLAXIS
     Dosage: TOTAL DOSE PRESCRIBED: 100 GNO. OF TUBES PER WEEK 7 AND NO. OF TUBES PER DAY: 1GRAM/TUBE 0.05 MG/G
     Route: 061
     Dates: start: 20180302
  9. TEMAZEPAM. [Concomitant]
     Active Substance: TEMAZEPAM
     Indication: DERMATITIS ATOPIC
     Dosage: 20 MG, PRN (TOTAL DOSE PRESCRIBED: 20 MGNO OF TUBES PER WEEK: 7 AND NO OF TUBES PER DAY: 1)
     Route: 048
     Dates: start: 20180309
  10. DUPILUMAB [Suspect]
     Active Substance: DUPILUMAB
     Indication: DERMATITIS ATOPIC
     Dosage: 600 MG,TOTAL
     Route: 058
     Dates: start: 20180302, end: 20180302
  11. DUPILUMAB [Suspect]
     Active Substance: DUPILUMAB
     Dosage: 300 MG, Q2W (300 MG QOW)
     Route: 058

REACTIONS (1)
  - Dermatitis atopic [Recovered/Resolved with Sequelae]

NARRATIVE: CASE EVENT DATE: 20180316
